FAERS Safety Report 9188770 (Version 1)
Quarter: 2013Q1

REPORT INFORMATION
  Report Type: Spontaneous
  Country: JM (occurrence: JM)
  Receive Date: 20130326
  Receipt Date: 20130326
  Transmission Date: 20140127
  Serious: Yes (Hospitalization, Other)
  Sender: FDA-Public Use
  Company Number: JM-B.I. PHARMACEUTICALS,INC./RIDGEFIELD-2013-CN-00444CN

PATIENT
  Sex: Male

DRUGS (1)
  1. PRADAX [Suspect]
     Dosage: 220 MG
     Dates: start: 201209

REACTIONS (2)
  - Prostate cancer [Unknown]
  - Haemorrhage [Unknown]
